FAERS Safety Report 19444281 (Version 7)
Quarter: 2021Q4

REPORT INFORMATION
  Report Type: Report from Study
  Country: HU (occurrence: HU)
  Receive Date: 20210621
  Receipt Date: 20211003
  Transmission Date: 20220303
  Serious: Yes (Death, Hospitalization, Other)
  Sender: FDA-Public Use
  Company Number: NVSC2021HU132290

PATIENT
  Age: 78 Year
  Sex: Female
  Weight: 50 kg

DRUGS (1)
  1. KISQALI [Suspect]
     Active Substance: RIBOCICLIB
     Indication: Breast cancer
     Dosage: 600 MG
     Route: 048
     Dates: start: 2021, end: 20210707

REACTIONS (8)
  - Cardiac failure [Fatal]
  - Cerebrovascular accident [Unknown]
  - Cardiac disorder [Unknown]
  - Ventricular extrasystoles [Unknown]
  - Electrocardiogram QT prolonged [Unknown]
  - Breast disorder [Unknown]
  - Paraesthesia [Unknown]
  - Erythema [Unknown]

NARRATIVE: CASE EVENT DATE: 20210623
